FAERS Safety Report 24830368 (Version 2)
Quarter: 2025Q4

REPORT INFORMATION
  Report Type: Spontaneous
  Country: US (occurrence: US)
  Receive Date: 20250110
  Receipt Date: 20251125
  Transmission Date: 20260118
  Serious: No
  Sender: MYLAN
  Company Number: US-MYLANLABS-2025M1000152

PATIENT
  Age: 33 Year
  Sex: Female
  Weight: 108.86 kg

DRUGS (6)
  1. GEODON [Suspect]
     Active Substance: ZIPRASIDONE HYDROCHLORIDE\ZIPRASIDONE MESYLATE
     Indication: Psychotic disorder
     Dosage: 40 MILLIGRAM, TID (3 TIMES A DAY. BLUE CAPSULE)
     Dates: start: 2017
  2. GEODON [Suspect]
     Active Substance: ZIPRASIDONE HYDROCHLORIDE\ZIPRASIDONE MESYLATE
     Dosage: 120 MILLIGRAM, QD (ONE CAPSULE IN MORNING AND TWO CAPSULES AT BEDTIME)
  3. TRILEPTAL [Concomitant]
     Active Substance: OXCARBAZEPINE
     Dosage: 300 MILLIGRAM, TID (3 TIMES DAY)
     Dates: start: 2017
  4. LORAZEPAM [Concomitant]
     Active Substance: LORAZEPAM
     Indication: Anxiety
     Dosage: 1 MILLIGRAM, QID (4 TIMES A DAY)
     Dates: start: 2017
  5. LORAZEPAM [Concomitant]
     Active Substance: LORAZEPAM
     Indication: Agitation
  6. FIRAZYR [Concomitant]
     Active Substance: ICATIBANT ACETATE
     Indication: Swelling
     Dosage: 30MG/3ML

REACTIONS (8)
  - Panic attack [Unknown]
  - Logorrhoea [Unknown]
  - Post-traumatic stress disorder [Unknown]
  - Tremor [Unknown]
  - Agitation [Unknown]
  - Product substitution issue [Unknown]
  - Incorrect dose administered [Unknown]
  - Drug ineffective for unapproved indication [Unknown]

NARRATIVE: CASE EVENT DATE: 20220301
